FAERS Safety Report 8507069-3 (Version None)
Quarter: 2012Q3

REPORT INFORMATION
  Report Type: 
  Country: None (occurrence: None)
  Receive Date: 20120712
  Receipt Date: 20120628
  Transmission Date: 20120928
  Serious: Yes (Other)
  Sender: FDA-Public Use
  Company Number: FI-GILEAD-2012-0054727

PATIENT
  Sex: Female

DRUGS (4)
  1. ABACAVIR SULFATE/LAMIVUDINE [Concomitant]
     Indication: HIV INFECTION
     Dosage: UNK
     Dates: start: 20110325
  2. RALTEGRAVIR [Concomitant]
     Indication: HIV INFECTION
     Dosage: UNK
     Dates: start: 20110227
  3. PREDNISOLONE [Concomitant]
     Indication: PROPHYLAXIS
  4. TRUVADA [Suspect]
     Indication: HIV INFECTION
     Dosage: UNK
     Dates: start: 20110227, end: 20110325

REACTIONS (1)
  - RENAL TUBULAR DISORDER [None]
